FAERS Safety Report 8197266 (Version 3)
Quarter: 2013Q1

REPORT INFORMATION
  Report Type: Spontaneous
  Country: US (occurrence: US)
  Receive Date: 20111024
  Receipt Date: 20130301
  Transmission Date: 20140127
  Serious: Yes (Hospitalization, Other)
  Sender: FDA-Public Use
  Company Number: US-ASTRAZENECA-2011SE61971

PATIENT
  Age: 71 Year
  Sex: Male
  Weight: 83.5 kg

DRUGS (22)
  1. CRESTOR [Suspect]
     Route: 048
  2. SYMBICORT PMDI [Suspect]
     Dosage: 160/4.5 MCG/ACT, UNKNOWN FREQUENCY
     Route: 055
  3. ALBUTEROL SULFATE [Concomitant]
     Dosage: 2.5 MG/3ML, 0.083%, 1 UNIT DOSE IN NEBULIZER EVERY 4 TO 6 HOURS,AS NEEDED
     Route: 055
  4. ASPIRIN [Concomitant]
     Route: 048
  5. BUPRENORPHINE HCL [Concomitant]
     Dosage: ONE IN NIGHT, 1/2 IN AM
     Route: 060
  6. CALCIUM PLUS D [Concomitant]
  7. CLOPIDOGREL BISULFATE [Concomitant]
     Route: 048
  8. DIGOXIN [Concomitant]
     Route: 048
  9. DIOVAN [Concomitant]
     Route: 048
  10. FUROSEMIDE [Concomitant]
     Route: 048
  11. MULTIVITAMINS [Concomitant]
  12. NITROSTAT [Concomitant]
     Indication: CHEST PAIN
     Dosage: PLACE 1 TABLET UNDER THE TONGUE EVERY 5 MINUTES FOR UP TO 3 DOSES AS NEEDED FOR CHEST PAIN
     Route: 060
  13. OXYGEN [Concomitant]
     Dosage: 3 LTR.
  14. PROMETHAZINE HCL [Concomitant]
     Dosage: 1 TABLET 3 TIMES DAILY,AS NEEDED
     Route: 048
  15. SPIRIVA [Concomitant]
     Dosage: SPIRIVA HANDIHALER
     Route: 055
  16. TAMSULOSIN HCL [Concomitant]
     Route: 048
  17. THIAMINE HCL [Concomitant]
     Route: 048
  18. VERAPAMIL HCL ER [Concomitant]
     Route: 048
  19. VITAMIN D3 [Concomitant]
     Dosage: 50000 UNIT, 1 CAPSULE MONTHLY
     Route: 048
  20. WARFARIN SODIUM [Concomitant]
     Dosage: 1-2 TABS PO Q DAY
     Route: 048
  21. ZANTAC [Concomitant]
     Dosage: 75 75 MG, 1 TABLET DAILY
     Route: 048
  22. TDAP [Concomitant]
     Dates: start: 20130204

REACTIONS (7)
  - Myocardial infarction [Unknown]
  - Cerebrovascular accident [Unknown]
  - Spinal compression fracture [Unknown]
  - Spinal fracture [Unknown]
  - Malaise [Unknown]
  - Pain [Unknown]
  - Drug dose omission [Unknown]
